FAERS Safety Report 4842817-5 (Version None)
Quarter: 2005Q4

REPORT INFORMATION
  Report Type: 
  Country: None (occurrence: None)
  Receive Date: 20051130
  Receipt Date: 20051118
  Transmission Date: 20060501
  Serious: Yes (Other)
  Sender: FDA-Public Use
  Company Number: 2005157694

PATIENT
  Sex: Male

DRUGS (1)
  1. AZITHROMYCIN [Suspect]
     Indication: NASOPHARYNGITIS
     Dosage: 500 MG, ORAL
     Route: 048

REACTIONS (4)
  - ARTHRALGIA [None]
  - ENDOCARDITIS [None]
  - SKIN EXFOLIATION [None]
  - SWELLING [None]
